FAERS Safety Report 5762738-3 (Version None)
Quarter: 2008Q2

REPORT INFORMATION
  Report Type: 
  Country: None (occurrence: None)
  Receive Date: 20080609
  Receipt Date: 20080603
  Transmission Date: 20081010
  Serious: Yes (Hospitalization)
  Sender: FDA-Public Use
  Company Number: JP-ASTRAZENECA-2008AP00876

PATIENT
  Age: 73 Year
  Sex: Male
  Weight: 71 kg

DRUGS (25)
  1. CASODEX [Suspect]
     Indication: PROSTATE CANCER
     Route: 048
     Dates: start: 20070829, end: 20071224
  2. CASODEX [Suspect]
     Route: 048
     Dates: start: 20080106, end: 20080115
  3. OMEPRAL TABLETS [Concomitant]
     Route: 048
  4. OMEPRAL INJECTION [Concomitant]
     Route: 041
  5. ASPIRIN [Concomitant]
     Dosage: DOSE UNKNOWN
     Route: 048
  6. NORVASC [Concomitant]
     Route: 048
  7. ALLOZYM 100MG [Concomitant]
     Dosage: DOSE UNKNOWN
     Route: 048
  8. BLOPRESS [Concomitant]
     Route: 048
  9. SIMVASTATIN TABLETS 5MG MEEK [Concomitant]
     Dosage: DOSE UNKNOWN
     Route: 048
  10. NEODOPASOL 100MG [Concomitant]
     Dosage: DOSE UNKNOWN
     Route: 048
  11. BI-SIFROL 0.5MG [Concomitant]
     Dosage: DOSE UNKNOWN
     Route: 048
  12. ARTANE 2MG [Concomitant]
     Dosage: DOSE UNKNOWN
     Route: 048
  13. ARICEPT D 5MG [Concomitant]
     Dosage: DOSE UNKNOWN
     Route: 048
  14. EVIPROSTAT [Concomitant]
     Dosage: DOSE UNKNOWN
     Route: 048
  15. TAMSULOSIN HYDROCHLORIDE 0.1MG EK [Concomitant]
     Dosage: DOSE UNKNOWN
     Route: 048
  16. NU-LOTAN 50MG [Concomitant]
     Dosage: DOSE UNKNOWN
     Route: 048
  17. MERCKMEZIN 2G [Concomitant]
     Dosage: FINE GRAIN
     Route: 048
  18. GLYCERIN ENEMA 60ML [Concomitant]
     Dosage: DOSE UNKNOWN
     Route: 054
  19. SELIS 2.5MG [Concomitant]
     Dosage: DOSE UNKNOWN
     Route: 048
  20. PURSENNID 12MG [Concomitant]
     Dosage: DOSE UNKNOWN
     Route: 048
  21. DICHLOTRIDE 25MG [Concomitant]
     Dosage: DOSE UNKNOWN
     Route: 048
  22. GOODMIN 0.25MG [Concomitant]
     Dosage: DOSE UNKNOWN
     Route: 048
  23. SLOW-K 600MG [Concomitant]
     Dosage: DOSE UNKNOWN
     Route: 048
  24. LASIX 20MG, 40MG [Concomitant]
     Dosage: DOSE UNKNOWN
     Route: 048
  25. CEFTAZIDIME [Concomitant]
     Dosage: DOSE UNKNOWN
     Route: 041

REACTIONS (1)
  - PLATELET COUNT DECREASED [None]
